FAERS Safety Report 5024874-9 (Version None)
Quarter: 2006Q2

REPORT INFORMATION
  Report Type: 
  Country: None (occurrence: None)
  Receive Date: 20060607
  Receipt Date: 20060524
  Transmission Date: 20061013
  Serious: Yes (Other)
  Sender: FDA-Public Use
  Company Number: JP200605002513

PATIENT
  Age: 50 Year
  Sex: Male

DRUGS (2)
  1. GEMZAR [Suspect]
     Indication: GALLBLADDER CANCER STAGE IV
     Dosage: 330 MG, OTHER, INTRAVENOUS
     Route: 042
     Dates: start: 20050903, end: 20050917
  2. THERAPEUTIC RADIOPHARMACEUTICALS [Concomitant]

REACTIONS (3)
  - NECROSIS [None]
  - PORTAL VEIN THROMBOSIS [None]
  - WHITE BLOOD CELL COUNT DECREASED [None]
